FAERS Safety Report 18994513 (Version 3)
Quarter: 2021Q2

REPORT INFORMATION
  Report Type: Report from Study
  Country: None (occurrence: US)
  Receive Date: 20210311
  Receipt Date: 20210407
  Transmission Date: 20210717
  Serious: Yes (Hospitalization)
  Sender: FDA-Public Use
  Company Number: US-ABBVIE-21K-163-3805079-00

PATIENT
  Age: 58 Year
  Sex: Female
  Weight: 81.72 kg

DRUGS (10)
  1. ETODOLAC. [Concomitant]
     Active Substance: ETODOLAC
     Indication: RHEUMATOID ARTHRITIS
  2. FOLIC ACID. [Concomitant]
     Active Substance: FOLIC ACID
     Indication: SUPPLEMENTATION THERAPY
  3. COVID?19 VACCINE NOS. [Concomitant]
     Active Substance: COVID-19 VACCINE NOS
     Indication: COVID-19 IMMUNISATION
     Dosage: PFIZER
     Route: 030
     Dates: start: 202103, end: 202103
  4. HYDROXYCHLOROQUINE [Concomitant]
     Active Substance: HYDROXYCHLOROQUINE
     Indication: RHEUMATOID ARTHRITIS
  5. RINVOQ [Suspect]
     Active Substance: UPADACITINIB
     Indication: RHEUMATOID ARTHRITIS
     Route: 048
     Dates: start: 2019, end: 202011
  6. TRAMADOL + ACETAMINOFEN [Concomitant]
     Active Substance: ACETAMINOPHEN\TRAMADOL
     Indication: PAIN
  7. PREDNISONE. [Concomitant]
     Active Substance: PREDNISONE
     Indication: RHEUMATOID ARTHRITIS
  8. LEFLUNOMIDE. [Concomitant]
     Active Substance: LEFLUNOMIDE
     Indication: RHEUMATOID ARTHRITIS
  9. RINVOQ [Suspect]
     Active Substance: UPADACITINIB
     Route: 048
     Dates: start: 20210205
  10. SULFASALAZINE. [Concomitant]
     Active Substance: SULFASALAZINE
     Indication: RHEUMATOID ARTHRITIS

REACTIONS (14)
  - Heart rate increased [Recovering/Resolving]
  - Gait inability [Recovering/Resolving]
  - Memory impairment [Recovering/Resolving]
  - Muscular weakness [Recovering/Resolving]
  - Rash [Recovering/Resolving]
  - Arthralgia [Recovering/Resolving]
  - Feeling abnormal [Recovering/Resolving]
  - Pneumonia [Recovering/Resolving]
  - Pain [Recovering/Resolving]
  - SARS-CoV-2 test positive [Recovered/Resolved]
  - Oxygen saturation decreased [Recovering/Resolving]
  - Loss of personal independence in daily activities [Recovering/Resolving]
  - Asthenia [Recovering/Resolving]
  - Pruritus [Recovering/Resolving]

NARRATIVE: CASE EVENT DATE: 202011
